FAERS Safety Report 6712298-5 (Version None)
Quarter: 2010Q2

REPORT INFORMATION
  Report Type: 
  Country: None (occurrence: None)
  Receive Date: 20100505
  Receipt Date: 20100421
  Transmission Date: 20101027
  Serious: Yes (Hospitalization)
  Sender: FDA-Public Use
  Company Number: DE-MYLANLABS-2010S1007002

PATIENT
  Age: 93 Year
  Sex: Female

DRUGS (7)
  1. FUROSEMIDE [Suspect]
     Indication: HYPERTENSION
     Route: 048
     Dates: start: 20081001, end: 20090531
  2. FENTANYL HEXAL [Interacting]
     Indication: PAIN
     Route: 062
     Dates: start: 20090421, end: 20090517
  3. SICCAPOS /01282201/ [Concomitant]
     Indication: DRY EYE
     Dosage: LINKES UND RECHTES AUGE
     Route: 047
     Dates: start: 20020201, end: 20090531
  4. ACETYLSALICYLIC ACID [Concomitant]
     Indication: ANTIPLATELET THERAPY
     Route: 048
     Dates: start: 20070101, end: 20090531
  5. OMEP [Concomitant]
     Indication: PROPHYLAXIS AGAINST GASTROINTESTINAL ULCER
     Route: 048
     Dates: start: 20070101, end: 20090531
  6. ALLOPURINOL [Concomitant]
     Indication: HYPERURICAEMIA
     Route: 048
     Dates: start: 20081001, end: 20090531
  7. BISOPROLOL FUMARATE [Concomitant]
     Indication: HYPERTENSION
     Route: 048
     Dates: start: 20081001

REACTIONS (2)
  - DRUG INTERACTION [None]
  - FAECALOMA [None]
